FAERS Safety Report 9348930 (Version 9)
Quarter: 2021Q4

REPORT INFORMATION
  Report Type: Spontaneous
  Country: CA (occurrence: CA)
  Receive Date: 20130614
  Receipt Date: 20211122
  Transmission Date: 20220303
  Serious: Yes (Hospitalization, Other)
  Sender: FDA-Public Use
  Company Number: CA-009507513-1306CAN005422

PATIENT
  Age: 36 Year
  Sex: Female

DRUGS (26)
  1. PEGINTERFERON ALFA-2B\RIBAVIRIN [Interacting]
     Active Substance: PEGINTERFERON ALFA-2B\RIBAVIRIN
     Indication: Chronic hepatitis C
     Dosage: 200.0 MG, 2 EVERY 1 DAYS
     Route: 065
  2. PEGINTERFERON ALFA-2B\RIBAVIRIN [Interacting]
     Active Substance: PEGINTERFERON ALFA-2B\RIBAVIRIN
     Dosage: 400.0 MG, 2 EVERY 1 DAYS
     Route: 065
  3. INTRON A [Interacting]
     Active Substance: INTERFERON ALFA-2B
     Indication: Hepatitis C
     Dosage: 400 MG, 2 EVERY 1 DAYS
     Route: 065
  4. INTRON A [Interacting]
     Active Substance: INTERFERON ALFA-2B
     Dosage: DOSAGE FORM NOT SPECIFIED, 200 MG, 2 EVERY 1 DAYS
     Route: 065
  5. INTRON A [Interacting]
     Active Substance: INTERFERON ALFA-2B
     Dosage: 48 MICROGRAM, UNK
     Route: 065
  6. INTRON A [Interacting]
     Active Substance: INTERFERON ALFA-2B
     Dosage: UNK
     Route: 065
  7. BOCEPREVIR\PEGINTERFERON ALFA-2B\RIBAVIRIN [Interacting]
     Active Substance: BOCEPREVIR\PEGINTERFERON ALFA-2B\RIBAVIRIN
     Indication: Product used for unknown indication
  8. BOCEPREVIR [Interacting]
     Active Substance: BOCEPREVIR
     Indication: Hepatitis cholestatic
     Dosage: 800.0 MG, 3 EVERY 1 DAY
     Route: 065
  9. BOCEPREVIR [Interacting]
     Active Substance: BOCEPREVIR
     Indication: Hepatitis C
  10. RIBAVIRIN [Interacting]
     Active Substance: RIBAVIRIN
     Indication: Chronic hepatitis C
     Dosage: 200 MG, 2 EVERY 1 DAYS
     Route: 065
  11. RIBAVIRIN [Interacting]
     Active Substance: RIBAVIRIN
     Indication: Hepatitis C
     Dosage: 400 MG, 2 EVERY 1 DAYS
     Route: 065
  12. RIBAVIRIN [Interacting]
     Active Substance: RIBAVIRIN
     Dosage: DOSAGE FORM NOT SPECIFIED
     Route: 065
  13. RIBAVIRIN [Interacting]
     Active Substance: RIBAVIRIN
     Dosage: UNK
     Route: 065
  14. PEGINTERFERON ALFA-2B [Interacting]
     Active Substance: PEGINTERFERON ALFA-2B
     Indication: Hepatitis C
     Dosage: 400 MG, 2 EVERY 1 DAYS
     Route: 065
  15. PEGINTERFERON ALFA-2B [Interacting]
     Active Substance: PEGINTERFERON ALFA-2B
     Dosage: 48.0 MICROGRAM, UNK
     Route: 065
  16. PEGINTERFERON ALFA-2A [Interacting]
     Active Substance: PEGINTERFERON ALFA-2A
     Indication: Chronic hepatitis C
     Dosage: UNK
     Route: 065
  17. PEGINTERFERON ALFA-2A [Interacting]
     Active Substance: PEGINTERFERON ALFA-2A
     Indication: Hepatitis C
  18. MYCOPHENOLATE MOFETIL [Interacting]
     Active Substance: MYCOPHENOLATE MOFETIL
     Indication: Liver transplant
     Dosage: UNK
     Route: 065
  19. MYCOPHENOLATE MOFETIL [Interacting]
     Active Substance: MYCOPHENOLATE MOFETIL
     Indication: Immunosuppression
  20. PROGRAF [Interacting]
     Active Substance: TACROLIMUS
     Indication: Liver transplant
     Dosage: DOSAGE FORM NOT SPECIFIED, 0.5 MG, 1 EVERY 3 WEEKS
     Route: 065
  21. PROGRAF [Interacting]
     Active Substance: TACROLIMUS
     Indication: Immunosuppression
     Dosage: 0.5 MG, 2 EVERY 1 DAYS
     Route: 065
  22. PROGRAF [Interacting]
     Active Substance: TACROLIMUS
     Dosage: UNK
     Route: 065
  23. PEGASYS [Interacting]
     Active Substance: PEGINTERFERON ALFA-2A
     Indication: Product used for unknown indication
     Dosage: UNK
     Route: 065
  24. VICTRELIS [Suspect]
     Active Substance: BOCEPREVIR
     Indication: Hepatitis cholestatic
     Route: 065
  25. BOCEPREVIR\PEGINTERFERON ALFA-2B\RIBAVIRIN [Suspect]
     Active Substance: BOCEPREVIR\PEGINTERFERON ALFA-2B\RIBAVIRIN
     Indication: Product used for unknown indication
     Dosage: BOCEPREVIR CAPSULE 200MG; RIBAVIRIN CAPSULE 200MG; PEGINTERFERON ALFA-2B
     Route: 065
  26. WARFARIN [Concomitant]
     Active Substance: WARFARIN
     Indication: Shunt thrombosis
     Route: 065

REACTIONS (13)
  - Hepatitis cholestatic [Unknown]
  - Liver transplant [Unknown]
  - Hepatitis C [Unknown]
  - Hepatic enzyme increased [Unknown]
  - Anaemia [Recovering/Resolving]
  - Neutropenia [Unknown]
  - Ascites [Unknown]
  - Hepatic function abnormal [Unknown]
  - Jaundice [Unknown]
  - Renal impairment [Unknown]
  - Drug level increased [Unknown]
  - Drug interaction [Unknown]
  - Drug ineffective [Unknown]
